FAERS Safety Report 23175236 (Version 4)
Quarter: 2024Q1

REPORT INFORMATION
  Report Type: Report from Study
  Country: US (occurrence: US)
  Receive Date: 20231113
  Receipt Date: 20240125
  Transmission Date: 20240409
  Serious: No
  Sender: FDA-Public Use
  Company Number: US-002147023-NVSC2023US238790

PATIENT
  Age: 35 Year
  Sex: Female

DRUGS (4)
  1. KESIMPTA [Suspect]
     Active Substance: OFATUMUMAB
     Indication: Relapsing multiple sclerosis
     Dosage: 20 MG, QMO
     Route: 058
     Dates: start: 20231006
  2. KESIMPTA [Suspect]
     Active Substance: OFATUMUMAB
     Indication: Clinically isolated syndrome
  3. METFORMIN [Concomitant]
     Active Substance: METFORMIN HYDROCHLORIDE
     Indication: Weight decreased
     Dosage: UNK
     Route: 065
  4. UNSPECIFIED INGREDIENT [Concomitant]
     Active Substance: UNSPECIFIED INGREDIENT
     Indication: Product used for unknown indication
     Dosage: UNK, UNKNOWN
     Route: 065
     Dates: start: 20231116

REACTIONS (9)
  - Blood cholesterol increased [Unknown]
  - Pain [Unknown]
  - Weight decreased [Unknown]
  - Sinusitis [Unknown]
  - Product availability issue [Unknown]
  - Cough [Unknown]
  - Productive cough [Unknown]
  - Ear discomfort [Unknown]
  - Malaise [Unknown]

NARRATIVE: CASE EVENT DATE: 20231122
